FAERS Safety Report 17104764 (Version 2)
Quarter: 2020Q2

REPORT INFORMATION
  Report Type: Spontaneous
  Country: US (occurrence: US)
  Receive Date: 20191203
  Receipt Date: 20200528
  Transmission Date: 20200713
  Serious: No
  Sender: FDA-Public Use
  Company Number: US-UCBSA-2018004812

PATIENT
  Age: 56 Year
  Sex: Male

DRUGS (1)
  1. CIMZIA [Suspect]
     Active Substance: CERTOLIZUMAB PEGOL
     Indication: RHEUMATOID ARTHRITIS
     Dosage: 200 MG, EV 2 WEEKS(QOW)
     Route: 058
     Dates: start: 20171115

REACTIONS (9)
  - Pain [Recovering/Resolving]
  - Fatigue [Recovering/Resolving]
  - Myalgia [Unknown]
  - Muscular weakness [Recovering/Resolving]
  - Faeces soft [Unknown]
  - Paraesthesia [Unknown]
  - Hypoaesthesia [Unknown]
  - Night sweats [Recovering/Resolving]
  - Neuralgia [Unknown]

NARRATIVE: CASE EVENT DATE: 20180313
